FAERS Safety Report 18253589 (Version 2)
Quarter: 2020Q4

REPORT INFORMATION
  Report Type: Spontaneous
  Country: DE (occurrence: DE)
  Receive Date: 20200910
  Receipt Date: 20201005
  Transmission Date: 20210113
  Serious: Yes (Hospitalization)
  Sender: FDA-Public Use
  Company Number: NVSC2020DE245465

PATIENT
  Age: 16 Year
  Sex: Male
  Weight: 73 kg

DRUGS (4)
  1. CLINDAMYCIN. [Suspect]
     Active Substance: CLINDAMYCIN
     Indication: ACNE
     Dosage: 3 DF, QD (DAILY DOSE: 3 DF DOSAGE FORM EVERY DAYS 3 SEPARATED DOSES)
     Route: 048
  2. AKNEMYCIN [ERYTHROMYCIN] [Suspect]
     Active Substance: ERYTHROMYCIN
     Indication: ACNE
     Dosage: UNK (STRENGTH: 20MG/G)
     Route: 061
  3. AKNENORMIN [Suspect]
     Active Substance: ISOTRETINOIN
     Indication: ACNE FULMINANS
     Dosage: 1 DF, QD (DAILY DOSE: 1 DF DOSAGE FORM EVERY DAYS)
     Route: 048
     Dates: start: 201904, end: 20190523
  4. URBASON [Suspect]
     Active Substance: METHYLPREDNISOLONE
     Indication: ACNE
     Dosage: UNK
     Route: 048
     Dates: end: 20190520

REACTIONS (6)
  - Myalgia [Unknown]
  - SAPHO syndrome [Unknown]
  - Weight decreased [Unknown]
  - Pyrexia [Unknown]
  - Arthralgia [Unknown]
  - Acne [Unknown]
